FAERS Safety Report 20091229 (Version 1)
Quarter: 2021Q4

REPORT INFORMATION
  Report Type: Report from Study
  Country: US (occurrence: US)
  Receive Date: 20211119
  Receipt Date: 20211119
  Transmission Date: 20220303
  Serious: Yes (Other)
  Sender: FDA-Public Use
  Company Number: US-JNJFOC-20211125680

PATIENT
  Age: 62 Year
  Sex: Male

DRUGS (2)
  1. SPRAVATO [Suspect]
     Active Substance: ESKETAMINE
     Indication: Product used for unknown indication
     Dosage: 56 MG, 4 TOTAL DOSES
     Dates: start: 20210320, end: 20210330
  2. SPRAVATO [Suspect]
     Active Substance: ESKETAMINE
     Dosage: 84 MG, 27 TOTAL DOSES
     Dates: start: 20210403, end: 20211109

REACTIONS (2)
  - Cardiac operation [Unknown]
  - Disinhibition [Unknown]

NARRATIVE: CASE EVENT DATE: 20210101
